FAERS Safety Report 25131721 (Version 1)
Quarter: 2025Q1

REPORT INFORMATION
  Report Type: Spontaneous
  Country: CZ (occurrence: CZ)
  Receive Date: 20250327
  Receipt Date: 20250327
  Transmission Date: 20250408
  Serious: Yes (Other)
  Sender: NOVARTIS
  Company Number: CZ-002147023-NVSC2025CZ048348

PATIENT
  Sex: Female

DRUGS (22)
  1. IMATINIB [Suspect]
     Active Substance: IMATINIB
     Indication: Chronic myeloid leukaemia
     Dosage: 400 MG, QD
     Route: 065
     Dates: start: 200604
  2. IMATINIB [Suspect]
     Active Substance: IMATINIB
     Route: 065
  3. IMATINIB [Suspect]
     Active Substance: IMATINIB
     Route: 065
     Dates: start: 2006, end: 200606
  4. IMATINIB [Suspect]
     Active Substance: IMATINIB
     Route: 065
     Dates: start: 2006, end: 200609
  5. IMATINIB [Suspect]
     Active Substance: IMATINIB
     Route: 065
     Dates: start: 2006, end: 200704
  6. IMATINIB [Suspect]
     Active Substance: IMATINIB
     Route: 065
     Dates: start: 2007
  7. IMATINIB [Suspect]
     Active Substance: IMATINIB
     Dosage: 600 MG, QD
     Route: 065
     Dates: end: 201103
  8. IMATINIB [Suspect]
     Active Substance: IMATINIB
     Route: 065
     Dates: start: 2011, end: 201104
  9. IMATINIB [Suspect]
     Active Substance: IMATINIB
     Route: 065
     Dates: start: 201205
  10. IMATINIB [Suspect]
     Active Substance: IMATINIB
     Route: 065
     Dates: end: 201306
  11. NILOTINIB [Suspect]
     Active Substance: NILOTINIB
     Indication: Chronic myeloid leukaemia
     Dosage: 600 MG, QD
     Route: 065
     Dates: start: 201104
  12. NILOTINIB [Suspect]
     Active Substance: NILOTINIB
     Route: 065
     Dates: end: 201205
  13. NILOTINIB [Suspect]
     Active Substance: NILOTINIB
     Dosage: 400 MG, QD
     Route: 065
     Dates: start: 202005
  14. NILOTINIB [Suspect]
     Active Substance: NILOTINIB
     Dosage: 800 UNK, QD
     Route: 065
  15. NILOTINIB [Suspect]
     Active Substance: NILOTINIB
     Route: 065
     Dates: end: 202401
  16. DASATINIB [Suspect]
     Active Substance: DASATINIB
     Indication: Chronic myeloid leukaemia
     Dosage: 90 MG, QD
     Route: 065
     Dates: start: 201306, end: 201602
  17. DASATINIB [Suspect]
     Active Substance: DASATINIB
     Dosage: 70 MG, QD
     Route: 065
     Dates: start: 201605, end: 201905
  18. DASATINIB [Suspect]
     Active Substance: DASATINIB
     Route: 065
     Dates: end: 202005
  19. ASCIMINIB [Suspect]
     Active Substance: ASCIMINIB
     Indication: Chronic myeloid leukaemia
     Dosage: 80 MG, BID
     Route: 065
     Dates: start: 202404
  20. PONATINIB [Suspect]
     Active Substance: PONATINIB
     Indication: Chronic myeloid leukaemia
     Dosage: 15 MG, QD
     Route: 065
     Dates: start: 202401
  21. PONATINIB [Suspect]
     Active Substance: PONATINIB
     Dosage: 45 MG, QD
     Route: 065
     Dates: start: 202402, end: 2024
  22. PONATINIB [Suspect]
     Active Substance: PONATINIB
     Route: 065
     Dates: end: 202404

REACTIONS (18)
  - Chronic myeloid leukaemia [Unknown]
  - Peritonitis [Unknown]
  - Haematotoxicity [Recovered/Resolved]
  - Thrombocytopenia [Recovered/Resolved]
  - Large intestine perforation [Recovered/Resolved]
  - Pleural effusion [Unknown]
  - Pleural effusion [Unknown]
  - Ileus [Recovered/Resolved]
  - Neuropathy peripheral [Unknown]
  - Vaginal haemorrhage [Recovered/Resolved]
  - Condition aggravated [Unknown]
  - Gastrointestinal tract irritation [Unknown]
  - Nausea [Unknown]
  - Vomiting [Unknown]
  - Hypertension [Unknown]
  - Dermatitis allergic [Unknown]
  - Treatment failure [Recovered/Resolved]
  - Therapeutic response shortened [Unknown]

NARRATIVE: CASE EVENT DATE: 20060501
